FAERS Safety Report 9330854 (Version 1)
Quarter: 2013Q2

REPORT INFORMATION
  Report Type: Spontaneous
  Country: US (occurrence: None)
  Receive Date: 20130604
  Receipt Date: 20130604
  Transmission Date: 20140414
  Serious: Yes (Other)
  Sender: FDA-Public Use
  Company Number: None

PATIENT
  Age: 66 Year
  Sex: Female
  Weight: 78.02 kg

DRUGS (1)
  1. GLIMEPIRIDE [Suspect]
     Indication: TYPE 2 DIABETES MELLITUS
     Dosage: EVERY AM BEFORE BREAKFAST
     Route: 048
     Dates: start: 20131111, end: 20130520

REACTIONS (5)
  - Pruritus [None]
  - Rash [None]
  - Chromaturia [None]
  - Liver function test abnormal [None]
  - Alanine aminotransferase increased [None]
